FAERS Safety Report 9158295 (Version 2)
Quarter: 2013Q2

REPORT INFORMATION
  Report Type: Spontaneous
  Country: VE (occurrence: VE)
  Receive Date: 20130312
  Receipt Date: 20130405
  Transmission Date: 20140414
  Serious: Yes (Other)
  Sender: FDA-Public Use
  Company Number: VE-PFIZER INC-2013081699

PATIENT
  Age: 71 Year
  Sex: Male

DRUGS (1)
  1. LIPITOR [Suspect]
     Indication: STENT PLACEMENT
     Dosage: 40 MG, DAILY
     Route: 048
     Dates: start: 2010, end: 201301

REACTIONS (3)
  - Cholelithiasis [Recovered/Resolved]
  - Abdominal pain upper [Recovered/Resolved]
  - Transaminases increased [Recovered/Resolved]
